FAERS Safety Report 9891126 (Version 1)
Quarter: 2014Q1

REPORT INFORMATION
  Report Type: Spontaneous
  Country: AT (occurrence: None)
  Receive Date: 20140210
  Receipt Date: 20140210
  Transmission Date: 20141002
  Serious: Yes (Other)
  Sender: FDA-Public Use
  Company Number: VAL_02968_2014

PATIENT
  Age: 25 Year
  Sex: Female

DRUGS (5)
  1. METOPROLOL [Suspect]
     Indication: HYPERTENSION
     Dosage: DF
  2. CICLOSPORIN [Suspect]
     Indication: IMMUNOSUPPRESSION
     Dosage: DF
  3. METHYLDOPA [Suspect]
     Indication: HYPERTENSION
     Dosage: DF
  4. DIHYDRALAZINE SULFATE [Suspect]
     Indication: HYPERTENSION
     Dosage: DF
  5. METHYLPREDNISOLONE [Suspect]
     Indication: KIDNEY TRANSPLANT REJECTION

REACTIONS (10)
  - Exposure during pregnancy [None]
  - Kidney transplant rejection [None]
  - Pre-eclampsia [None]
  - Renal impairment [None]
  - Blood pressure increased [None]
  - Caesarean section [None]
  - Premature delivery [None]
  - Immunosuppressant drug level increased [None]
  - Twin pregnancy [None]
  - Foetal growth restriction [None]
